FAERS Safety Report 6312753-6 (Version None)
Quarter: 2009Q3

REPORT INFORMATION
  Report Type: 
  Country: None (occurrence: None)
  Receive Date: 20090818
  Receipt Date: 20090813
  Transmission Date: 20100115
  Serious: Yes (Congenital Anomaly, Other)
  Sender: FDA-Public Use
  Company Number: DE-BRISTOL-MYERS SQUIBB COMPANY-14742720

PATIENT
  Age: 2 Month
  Sex: Male

DRUGS (1)
  1. ABILIFY [Suspect]
     Route: 064
     Dates: end: 20081117

REACTIONS (3)
  - FLOPPY INFANT [None]
  - HEART DISEASE CONGENITAL [None]
  - TRISOMY 21 [None]
